FAERS Safety Report 6656115-0 (Version None)
Quarter: 2010Q1

REPORT INFORMATION
  Report Type: 
  Country: None (occurrence: None)
  Receive Date: 20100329
  Receipt Date: 20100325
  Transmission Date: 20100710
  Serious: Yes (Other)
  Sender: FDA-Public Use
  Company Number: B0642986A

PATIENT
  Sex: Female

DRUGS (13)
  1. AUGMENTIN [Suspect]
     Indication: DRUG USE FOR UNKNOWN INDICATION
     Dosage: 1G THREE TIMES PER DAY
     Route: 048
     Dates: start: 20100301, end: 20100305
  2. RISPERDAL [Suspect]
     Indication: DRUG USE FOR UNKNOWN INDICATION
     Route: 048
     Dates: end: 20100305
  3. ALDACTAZINE [Suspect]
     Indication: DRUG USE FOR UNKNOWN INDICATION
     Dosage: .5UNIT PER DAY
     Route: 048
     Dates: end: 20100305
  4. THERALENE [Suspect]
     Indication: DRUG USE FOR UNKNOWN INDICATION
     Dosage: 30MG PER DAY
     Route: 048
     Dates: end: 20100305
  5. TERCIAN [Suspect]
     Indication: DRUG USE FOR UNKNOWN INDICATION
     Dosage: 125MG PER DAY
     Route: 048
     Dates: end: 20100305
  6. ATHYMIL [Suspect]
     Indication: DRUG USE FOR UNKNOWN INDICATION
     Dosage: 60MG PER DAY
     Route: 048
     Dates: end: 20100305
  7. NOCTAMIDE [Suspect]
     Indication: DRUG USE FOR UNKNOWN INDICATION
     Dosage: 1UNIT PER DAY
     Route: 048
     Dates: end: 20100305
  8. TRANXENE [Suspect]
     Indication: DRUG USE FOR UNKNOWN INDICATION
     Dosage: 10MG THREE TIMES PER DAY
     Route: 048
     Dates: end: 20100305
  9. LEPTICUR [Suspect]
     Indication: DRUG USE FOR UNKNOWN INDICATION
     Dosage: 70MG PER DAY
     Route: 048
     Dates: end: 20100305
  10. LOXEN LP [Suspect]
     Indication: DRUG USE FOR UNKNOWN INDICATION
     Dosage: 50MG TWICE PER DAY
     Route: 048
     Dates: end: 20100305
  11. FORLAX [Suspect]
     Indication: DRUG USE FOR UNKNOWN INDICATION
     Dosage: 1UNIT THREE TIMES PER DAY
     Route: 048
     Dates: end: 20100305
  12. SOLUPRED [Suspect]
     Indication: DRUG USE FOR UNKNOWN INDICATION
     Route: 048
     Dates: start: 20100301, end: 20100305
  13. PARACETAMOL [Suspect]
     Indication: DRUG USE FOR UNKNOWN INDICATION
     Route: 048
     Dates: start: 20100301, end: 20100305

REACTIONS (2)
  - APLASTIC ANAEMIA [None]
  - NORMOCHROMIC NORMOCYTIC ANAEMIA [None]
